FAERS Safety Report 12313927 (Version 1)
Quarter: 2016Q2

REPORT INFORMATION
  Report Type: Spontaneous
  Country: US (occurrence: US)
  Receive Date: 20160428
  Receipt Date: 20160428
  Transmission Date: 20160815
  Serious: No
  Sender: FDA-Public Use
  Company Number: US-BAUSCH-BL-2015-009233

PATIENT
  Age: 83 Year
  Sex: Female
  Weight: 74.91 kg

DRUGS (6)
  1. LOTEMAX [Suspect]
     Active Substance: LOTEPREDNOL ETABONATE
     Indication: DRY EYE
     Route: 047
     Dates: start: 201509
  2. LISINOPRIL. [Concomitant]
     Active Substance: LISINOPRIL
     Indication: PRODUCT USED FOR UNKNOWN INDICATION
  3. COQ 10 [Concomitant]
     Active Substance: UBIDECARENONE
     Indication: PRODUCT USED FOR UNKNOWN INDICATION
  4. LOTEMAX [Suspect]
     Active Substance: LOTEPREDNOL ETABONATE
     Route: 047
     Dates: start: 20150210, end: 20150228
  5. PANTOPRAZOLE [Concomitant]
     Active Substance: PANTOPRAZOLE SODIUM
     Indication: PRODUCT USED FOR UNKNOWN INDICATION
  6. PRAVASTATIN [Concomitant]
     Active Substance: PRAVASTATIN\PRAVASTATIN SODIUM
     Indication: PRODUCT USED FOR UNKNOWN INDICATION

REACTIONS (7)
  - Vision blurred [Recovered/Resolved]
  - Therapeutic product ineffective for unapproved indication [Unknown]
  - Eyelid oedema [Recovered/Resolved]
  - Eye irritation [Recovered/Resolved]
  - Eyelids pruritus [Recovered/Resolved]
  - Eye swelling [Recovered/Resolved]
  - Off label use [Unknown]

NARRATIVE: CASE EVENT DATE: 201502
